FAERS Safety Report 5205062-X (Version None)
Quarter: 2007Q1

REPORT INFORMATION
  Report Type: 
  Country: None (occurrence: None)
  Receive Date: 20070110
  Receipt Date: 20061017
  Transmission Date: 20070707
  Serious: No
  Sender: FDA-Public Use
  Company Number: US-BRISTOL-MYERS SQUIBB COMPANY-13544275

PATIENT
  Age: 11 Year
  Sex: Female
  Weight: 44 kg

DRUGS (3)
  1. ABILIFY [Suspect]
     Indication: ANGER
     Dates: start: 20060101
  2. ZOLOFT [Concomitant]
  3. STRATTERA [Concomitant]

REACTIONS (1)
  - WEIGHT INCREASED [None]
